FAERS Safety Report 7757820-5 (Version None)
Quarter: 2011Q3

REPORT INFORMATION
  Report Type: 
  Country: None (occurrence: None)
  Receive Date: 20110918
  Receipt Date: 20110908
  Transmission Date: 20111222
  Serious: Yes (Other)
  Sender: FDA-Public Use
  Company Number: IE-ASTRAZENECA-2011SE53799

PATIENT
  Sex: Female

DRUGS (10)
  1. CORDARONE [Concomitant]
  2. PLAVIX [Concomitant]
  3. ALENDRONATE SODIUM [Concomitant]
     Dosage: 70/2800 MG
  4. ATACAND HCT [Concomitant]
     Route: 048
     Dates: start: 20060101
  5. LIPITOR [Concomitant]
  6. ATACAND [Suspect]
     Route: 048
     Dates: start: 20101001
  7. ISOPTIN SR [Concomitant]
  8. ALDOMET [Concomitant]
  9. ASPIRIN [Concomitant]
  10. CARDURA [Concomitant]

REACTIONS (2)
  - MEDICATION RESIDUE [None]
  - BLOOD PRESSURE INADEQUATELY CONTROLLED [None]
